FAERS Safety Report 9811668 (Version 2)
Quarter: 2016Q4

REPORT INFORMATION
  Report Type: Spontaneous
  Country: US (occurrence: US)
  Receive Date: 20140110
  Receipt Date: 20161219
  Transmission Date: 20170207
  Serious: Yes (Other)
  Sender: FDA-Public Use
  Company Number: US-SANOFI-AVENTIS-2013SA049182

PATIENT
  Age: 60 Year
  Sex: Male
  Weight: 101.1 kg

DRUGS (45)
  1. ASPIRIN. [Suspect]
     Active Substance: ASPIRIN
     Route: 065
     Dates: start: 1998, end: 2012
  2. DULCOLAX NOS [Concomitant]
     Active Substance: BISACODYL OR DOCUSATE SODIUM
  3. VANCOMYCIN [Concomitant]
     Active Substance: VANCOMYCIN
     Route: 042
  4. PHENYTOIN. [Concomitant]
     Active Substance: PHENYTOIN
  5. METRONIDAZOLE. [Concomitant]
     Active Substance: METRONIDAZOLE
  6. IMIPENEM [Concomitant]
     Active Substance: IMIPENEM
  7. PLAVIX [Suspect]
     Active Substance: CLOPIDOGREL BISULFATE
     Indication: ACUTE CORONARY SYNDROME
     Route: 065
     Dates: end: 20120331
  8. COUMADIN [Concomitant]
     Active Substance: WARFARIN SODIUM
     Dates: start: 20100123, end: 20110708
  9. FOSINOPRIL [Concomitant]
     Active Substance: FOSINOPRIL
  10. VITAMIN C [Concomitant]
     Active Substance: ASCORBIC ACID
     Route: 048
  11. REMERON [Concomitant]
     Active Substance: MIRTAZAPINE
     Route: 048
  12. ENOXAPARIN [Concomitant]
     Active Substance: ENOXAPARIN
  13. GLYBURIDE. [Concomitant]
     Active Substance: GLYBURIDE
  14. PROMETHAZINE [Concomitant]
     Active Substance: PROMETHAZINE\PROMETHAZINE HYDROCHLORIDE
  15. PLAVIX [Suspect]
     Active Substance: CLOPIDOGREL BISULFATE
     Indication: PROPHYLAXIS
     Route: 065
     Dates: start: 20110709
  16. ACTOS [Concomitant]
     Active Substance: PIOGLITAZONE HYDROCHLORIDE
  17. LOSARTAN. [Concomitant]
     Active Substance: LOSARTAN
  18. COUMADIN [Concomitant]
     Active Substance: WARFARIN SODIUM
     Route: 048
  19. INSULIN [Concomitant]
     Active Substance: INSULIN NOS
  20. SIMVASTATIN. [Concomitant]
     Active Substance: SIMVASTATIN
  21. MORPHINE SULFATE. [Concomitant]
     Active Substance: MORPHINE SULFATE
  22. VITAMIN A [Concomitant]
     Active Substance: VITAMIN A
  23. VITAMIN D [Concomitant]
     Active Substance: CHOLECALCIFEROL
  24. PLAVIX [Suspect]
     Active Substance: CLOPIDOGREL BISULFATE
     Indication: ACUTE CORONARY SYNDROME
     Route: 065
     Dates: start: 20110709
  25. PLAVIX [Suspect]
     Active Substance: CLOPIDOGREL BISULFATE
     Indication: MYOCARDIAL INFARCTION
     Route: 065
     Dates: start: 20110709
  26. PLAVIX [Suspect]
     Active Substance: CLOPIDOGREL BISULFATE
     Indication: PROPHYLAXIS
     Route: 065
     Dates: end: 20120331
  27. COZAAR [Concomitant]
     Active Substance: LOSARTAN POTASSIUM
  28. JANUVIA [Concomitant]
     Active Substance: SITAGLIPTIN PHOSPHATE
  29. TENORMIN [Concomitant]
     Active Substance: ATENOLOL
     Route: 048
  30. GLUCERNA ^ABBOTT^ [Concomitant]
  31. HYDROCHLOROTHIAZIDE. [Concomitant]
     Active Substance: HYDROCHLOROTHIAZIDE
  32. CATAPRES [Concomitant]
     Active Substance: CLONIDINE HYDROCHLORIDE
  33. ATENOLOL. [Concomitant]
     Active Substance: ATENOLOL
  34. GLUCOPHAGE [Concomitant]
     Active Substance: METFORMIN HYDROCHLORIDE
     Route: 048
  35. ENALAPRIL [Concomitant]
     Active Substance: ENALAPRIL
  36. ZINC SULFATE [Concomitant]
     Active Substance: ZINC SULFATE\ZINC SULFATE ANHYDROUS
  37. PLAVIX [Suspect]
     Active Substance: CLOPIDOGREL BISULFATE
     Indication: MYOCARDIAL INFARCTION
     Route: 065
     Dates: end: 20120331
  38. COUMADIN [Concomitant]
     Active Substance: WARFARIN SODIUM
     Dates: start: 20080201, end: 20100123
  39. NORVASC [Concomitant]
     Active Substance: AMLODIPINE BESYLATE
     Dates: start: 1995, end: 2012
  40. KEPPRA [Concomitant]
     Active Substance: LEVETIRACETAM
  41. CLONIDINE. [Concomitant]
     Active Substance: CLONIDINE
  42. VERAPAMIL [Concomitant]
     Active Substance: VERAPAMIL HYDROCHLORIDE
  43. PRIMAXIN IV [Concomitant]
     Active Substance: CILASTATIN SODIUM\IMIPENEM
  44. INSULIN GLARGINE [Concomitant]
     Active Substance: INSULIN GLARGINE
     Dosage: DOSE:25 UNIT(S)
     Route: 058
  45. TYLENOL [Concomitant]
     Active Substance: ACETAMINOPHEN

REACTIONS (1)
  - Gastrointestinal haemorrhage [Unknown]

NARRATIVE: CASE EVENT DATE: 20111217
